FAERS Safety Report 9184883 (Version 1)
Quarter: 2013Q1

REPORT INFORMATION
  Report Type: Spontaneous
  Country: US (occurrence: US)
  Receive Date: 20130325
  Receipt Date: 20130325
  Transmission Date: 20140127
  Serious: Yes (Other)
  Sender: FDA-Public Use
  Company Number: CHPA2013US004766

PATIENT
  Age: 18 Year
  Sex: Male

DRUGS (1)
  1. TRANSDERM SCOP [Suspect]
     Indication: DROOLING
     Dosage: 1 DF, Q72H
     Route: 062
     Dates: start: 20121213

REACTIONS (5)
  - Rash [Recovering/Resolving]
  - Dermatitis contact [Recovering/Resolving]
  - Skin irritation [Recovering/Resolving]
  - Off label use [Unknown]
  - Drug administered at inappropriate site [Unknown]
